FAERS Safety Report 4853496-5 (Version None)
Quarter: 2005Q4

REPORT INFORMATION
  Report Type: 
  Country: None (occurrence: None)
  Receive Date: 20051214
  Receipt Date: 20051205
  Transmission Date: 20060501
  Serious: Yes (Other)
  Sender: FDA-Public Use
  Company Number: TR-BRISTOL-MYERS SQUIBB COMPANY-13204458

PATIENT
  Age: 13 Year
  Sex: Male

DRUGS (3)
  1. METHOTREXATE SODIUM [Suspect]
     Indication: NON-HODGKIN'S LYMPHOMA
     Route: 037
  2. CYTARABINE [Suspect]
     Indication: NON-HODGKIN'S LYMPHOMA
  3. PREDNISOLONE [Concomitant]
     Indication: NON-HODGKIN'S LYMPHOMA

REACTIONS (2)
  - ARACHNOIDITIS [None]
  - MYELOPATHY [None]
